FAERS Safety Report 22087964 (Version 1)
Quarter: 2023Q1

REPORT INFORMATION
  Report Type: Spontaneous
  Country: DE (occurrence: DE)
  Receive Date: 20230313
  Receipt Date: 20230313
  Transmission Date: 20230417
  Serious: Yes (Death, Other)
  Sender: FDA-Public Use
  Company Number: DE-TAKEDA-2023TUS021270

PATIENT
  Age: 93 Year
  Sex: Female
  Weight: 42 kg

DRUGS (7)
  1. PANTOPRAZOLE [Suspect]
     Active Substance: PANTOPRAZOLE
     Indication: Product used for unknown indication
     Dosage: UNK
     Route: 065
     Dates: start: 20190802
  2. PANTOPRAZOLE [Suspect]
     Active Substance: PANTOPRAZOLE
     Dosage: UNK
     Route: 065
     Dates: start: 20190802
  3. AMIODARONE [Concomitant]
     Active Substance: AMIODARONE
     Indication: Product used for unknown indication
     Dosage: UNK
     Route: 065
     Dates: start: 20190802
  4. EPINEPHRINE [Concomitant]
     Active Substance: EPINEPHRINE
     Indication: Product used for unknown indication
     Dosage: 30 MICROGRAM, ONCE A DAY (10 MICROGRAMS, TIME)
     Route: 065
     Dates: start: 20190802
  5. KETAMIN [Concomitant]
     Active Substance: KETAMINE
     Indication: Anaesthesia
     Dosage: UNK
     Route: 065
     Dates: start: 20190802
  6. MIDAZOLAM [Concomitant]
     Active Substance: MIDAZOLAM
     Indication: Anaesthesia
     Dosage: 1 MILLIGRAM
     Route: 065
     Dates: start: 20190802
  7. SUPRARENIN [Concomitant]
     Active Substance: EPINEPHRINE
     Indication: Product used for unknown indication
     Dosage: 3 MILLIGRAM, ONCE A DAY (1 MILLIGRAM, TID)
     Route: 065
     Dates: start: 20190802

REACTIONS (2)
  - Cardiac failure [Fatal]
  - Poisoning [Fatal]

NARRATIVE: CASE EVENT DATE: 20190802
